FAERS Safety Report 21385832 (Version 1)
Quarter: 2022Q3

REPORT INFORMATION
  Report Type: Other
  Country: IE (occurrence: None)
  Receive Date: 20220928
  Receipt Date: 20220928
  Transmission Date: 20221026
  Serious: Yes (Other)
  Sender: FDA-Public Use
  Company Number: IE-ROCHE-3183586

PATIENT
  Sex: Male

DRUGS (1)
  1. OCREVUS [Suspect]
     Active Substance: OCRELIZUMAB
     Indication: Product used for unknown indication
     Dosage: 600 MG X IN 2 VIALS IN 300MG
     Route: 042

REACTIONS (3)
  - SARS-CoV-2 test positive [Unknown]
  - Fall [Unknown]
  - Hemiparesis [Unknown]
